FAERS Safety Report 8977426 (Version 3)
Quarter: 2013Q1

REPORT INFORMATION
  Report Type: Spontaneous
  Country: JP (occurrence: JP)
  Receive Date: 20121219
  Receipt Date: 20130114
  Transmission Date: 20140127
  Serious: Yes (Life-Threatening, Hospitalization)
  Sender: FDA-Public Use
  Company Number: JP-ELI_LILLY_AND_COMPANY-JP201212003770

PATIENT
  Age: 68 Year
  Sex: Male
  Weight: 46 kg

DRUGS (1)
  1. ZYPREXA [Suspect]
     Indication: SCHIZOPHRENIA
     Dosage: 10 MG, QD
     Route: 048

REACTIONS (4)
  - Cellulitis [Recovered/Resolved]
  - Septic shock [Recovered/Resolved]
  - Hypoglycaemia [Not Recovered/Not Resolved]
  - Malnutrition [Not Recovered/Not Resolved]
